FAERS Safety Report 11091024 (Version 1)
Quarter: 2015Q2

REPORT INFORMATION
  Report Type: Spontaneous
  Country: US (occurrence: None)
  Receive Date: 20150504
  Receipt Date: 20150504
  Transmission Date: 20150821
  Serious: No
  Sender: FDA-Public Use
  Company Number: None

PATIENT
  Age: 53 Year
  Sex: Female
  Weight: 58.06 kg

DRUGS (4)
  1. VITAMIN D3 [Concomitant]
     Active Substance: CHOLECALCIFEROL
  2. MULTIHANCE [Suspect]
     Active Substance: GADOBENATE DIMEGLUMINE
     Indication: NUCLEAR MAGNETIC RESONANCE IMAGING
     Dosage: ONE TIME ONLY INTO A VEIN
     Dates: start: 20150430, end: 20150430
  3. FISH OIL [Concomitant]
     Active Substance: FISH OIL
  4. CHEWABLE CENTRUM MULTI-VITAMIN [Concomitant]

REACTIONS (6)
  - Neck pain [None]
  - Headache [None]
  - Feeling hot [None]
  - Insomnia [None]
  - Formication [None]
  - Contrast media reaction [None]

NARRATIVE: CASE EVENT DATE: 20150430
